FAERS Safety Report 8014939-1 (Version None)
Quarter: 2011Q4

REPORT INFORMATION
  Report Type: 
  Country: None (occurrence: None)
  Receive Date: 20111229
  Receipt Date: 20111222
  Transmission Date: 20120403
  Serious: Yes (Death, Other)
  Sender: FDA-Public Use
  Company Number: JP-ROCHE-1014921

PATIENT
  Sex: Female
  Weight: 56 kg

DRUGS (3)
  1. TAXOL [Concomitant]
     Indication: BREAST CANCER METASTATIC
     Dosage: DOSAGE IS UNCERTAIN.
     Route: 041
     Dates: start: 20111115, end: 20111115
  2. OXYCONTIN [Concomitant]
     Indication: CANCER PAIN
     Dosage: IN THE MORNING: AT AND 10MG/NIGHT: 30MG/DAY.
     Route: 048
     Dates: start: 20111019, end: 20111115
  3. AVASTIN [Suspect]
     Indication: BREAST CANCER METASTATIC
     Dosage: DOSAGE IS UNCERTAIN.
     Route: 041
     Dates: start: 20111115, end: 20111115

REACTIONS (5)
  - MYOCARDIAL INFARCTION [None]
  - TRAUMATIC LUNG INJURY [None]
  - MALAISE [None]
  - CARDIO-RESPIRATORY ARREST [None]
  - CARDIAC FAILURE [None]
